FAERS Safety Report 5590010-3 (Version None)
Quarter: 2008Q1

REPORT INFORMATION
  Report Type: 
  Country: None (occurrence: None)
  Receive Date: 20080114
  Receipt Date: 20070427
  Transmission Date: 20080703
  Serious: No
  Sender: FDA-Public Use
  Company Number: US-ABBOTT-06P-163-0354059-00

PATIENT
  Age: 18 Month
  Sex: Female

DRUGS (1)
  1. OMNICEF [Suspect]
     Indication: OTITIS MEDIA
     Route: 048

REACTIONS (4)
  - ABNORMAL BEHAVIOUR [None]
  - CRYING [None]
  - DECREASED APPETITE [None]
  - SLEEP DISORDER [None]
